FAERS Safety Report 15975858 (Version 1)
Quarter: 2019Q1

REPORT INFORMATION
  Report Type: Spontaneous
  Country: US (occurrence: US)
  Receive Date: 20190218
  Receipt Date: 20190218
  Transmission Date: 20190418
  Serious: No
  Sender: FDA-Public Use
  Company Number: US-CELLTRION INC.-2018US024169

PATIENT

DRUGS (27)
  1. SOMINEX                            /00000402/ [Concomitant]
  2. VANSPAR [Concomitant]
  3. PREMARIN [Concomitant]
     Active Substance: ESTROGENS, CONJUGATED
  4. PROPAFENONE. [Concomitant]
     Active Substance: PROPAFENONE
  5. XARELTO [Concomitant]
     Active Substance: RIVAROXABAN
  6. OCEAN NASAL [Concomitant]
  7. INFLIXIMAB (UNKNOWN) [Suspect]
     Active Substance: INFLIXIMAB
  8. FLONASE [Concomitant]
     Active Substance: FLUTICASONE PROPIONATE
  9. LASIX [Concomitant]
     Active Substance: FUROSEMIDE
  10. ADVIL LIQUI GELS [Concomitant]
  11. PRILOSEC [Concomitant]
     Active Substance: OMEPRAZOLE MAGNESIUM
  12. IMITREX [Concomitant]
     Active Substance: SUMATRIPTAN SUCCINATE
  13. TYLENOL [Concomitant]
     Active Substance: ACETAMINOPHEN
  14. CALTRATE 600+D [Concomitant]
  15. AMITIZA [Concomitant]
     Active Substance: LUBIPROSTONE
  16. VENTOLIN HFA [Concomitant]
     Active Substance: ALBUTEROL SULFATE
  17. NORVASC [Concomitant]
     Active Substance: AMLODIPINE BESYLATE
  18. PROZAC [Concomitant]
     Active Substance: FLUOXETINE HYDROCHLORIDE
  19. NILSTAT                            /00036501/ [Concomitant]
  20. PRED FORTE [Concomitant]
     Active Substance: PREDNISOLONE ACETATE
  21. FORTEO [Concomitant]
     Active Substance: TERIPARATIDE
  22. VIBRAMYCIN                         /00055702/ [Concomitant]
  23. MUCINEX [Concomitant]
     Active Substance: GUAIFENESIN
  24. SYNTHROID [Concomitant]
     Active Substance: LEVOTHYROXINE SODIUM
  25. DOLOPHINE [Concomitant]
     Active Substance: METHADONE HYDROCHLORIDE
  26. DELTASONE [Concomitant]
     Active Substance: PREDNISONE
  27. RYTHMOL [Concomitant]
     Active Substance: PROPAFENONE HYDROCHLORIDE

REACTIONS (1)
  - Serum sickness [Unknown]
